FAERS Safety Report 7168193-3 (Version None)
Quarter: 2010Q4

REPORT INFORMATION
  Report Type: 
  Country: None (occurrence: None)
  Receive Date: 20101216
  Receipt Date: 20101213
  Transmission Date: 20110411
  Serious: No
  Sender: FDA-Public Use
  Company Number: US-PFIZER INC-2010170823

PATIENT
  Sex: Male
  Weight: 65.76 kg

DRUGS (3)
  1. CAVERJECT [Suspect]
     Indication: ERECTILE DYSFUNCTION
     Dosage: UNK
     Route: 051
  2. LANTUS [Concomitant]
     Indication: DIABETES MELLITUS
     Dosage: 35 MG, UNK
  3. NOVOLOG [Concomitant]
     Indication: DIABETES MELLITUS
     Dosage: UNK

REACTIONS (1)
  - PAINFUL ERECTION [None]
